FAERS Safety Report 10232653 (Version 1)
Quarter: 2014Q2

REPORT INFORMATION
  Report Type: Spontaneous
  Country: US (occurrence: None)
  Receive Date: 20140506
  Receipt Date: 20140506
  Transmission Date: 20141212
  Serious: Yes (Other)
  Sender: FDA-Public Use
  Company Number: 1225035

PATIENT
  Sex: Female

DRUGS (4)
  1. AVASTIN (BEVACIZUMAB) [Suspect]
     Indication: LUNG NEOPLASM MALIGNANT
  2. PEMETREXED [Suspect]
     Indication: LUNG NEOPLASM MALIGNANT
  3. CARBOPLATIN (CARBOPLATIN) [Concomitant]
  4. TAXOL (PACLITAXEL) [Concomitant]

REACTIONS (1)
  - Thrombotic microangiopathy [None]
